FAERS Safety Report 5219099-8 (Version None)
Quarter: 2007Q1

REPORT INFORMATION
  Report Type: 
  Country: None (occurrence: None)
  Receive Date: 20070123
  Receipt Date: 20070116
  Transmission Date: 20070707
  Serious: No
  Sender: FDA-Public Use
  Company Number: COM # 07-009

PATIENT
  Age: 75 Year
  Sex: Female
  Weight: 69.4003 kg

DRUGS (2)
  1. METOPROLOL TARTRATE [Suspect]
     Indication: HYPERTENSION
     Dosage: 75 MG, 2X DAILY, ORAL
     Route: 048
  2. FOSAMAX D [Concomitant]

REACTIONS (2)
  - CONDITION AGGRAVATED [None]
  - DYSPNOEA [None]
